FAERS Safety Report 12391139 (Version 1)
Quarter: 2016Q2

REPORT INFORMATION
  Report Type: Spontaneous
  Country: US (occurrence: US)
  Receive Date: 20160520
  Receipt Date: 20160520
  Transmission Date: 20160815
  Serious: Yes (Other)
  Sender: FDA-Public Use
  Company Number: US-TEVA-661124USA

PATIENT
  Sex: Female

DRUGS (1)
  1. EPTIFIBATIDE. [Suspect]
     Active Substance: EPTIFIBATIDE
     Indication: THROMBOSIS IN DEVICE
     Route: 065

REACTIONS (1)
  - Menorrhagia [Unknown]
